FAERS Safety Report 7598387-4 (Version None)
Quarter: 2011Q3

REPORT INFORMATION
  Report Type: 
  Country: None (occurrence: None)
  Receive Date: 20110708
  Receipt Date: 20110627
  Transmission Date: 20111222
  Serious: Yes (Other)
  Sender: FDA-Public Use
  Company Number: PHHY2010DE77693

PATIENT
  Age: 70 Year
  Sex: Female

DRUGS (1)
  1. ESTRADERM [Suspect]
     Indication: HORMONE REPLACEMENT THERAPY
     Dosage: 25 MICROGRAM/24 HR, ONE PATCH EVERY 3 OR 4 DAYS
     Route: 062

REACTIONS (2)
  - THERAPEUTIC RESPONSE UNEXPECTED [None]
  - ARRHYTHMIA [None]
